FAERS Safety Report 15393777 (Version 1)
Quarter: 2018Q3

REPORT INFORMATION
  Report Type: Spontaneous
  Country: PK (occurrence: PK)
  Receive Date: 20180917
  Receipt Date: 20180917
  Transmission Date: 20181010
  Serious: Yes (Other)
  Sender: FDA-Public Use
  Company Number: PK-PENTEC HEALTH-2018PEN00044

PATIENT
  Sex: Female

DRUGS (1)
  1. BUPIVACAINE HYDROCHLORIDE. [Suspect]
     Active Substance: BUPIVACAINE HYDROCHLORIDE
     Indication: SPINAL ANAESTHESIA
     Dosage: 20/40 SUBJECTS BUPIVACAINE 0.5% AT 10 MG FIXED DOSE; 15/40 SUBJECTS BUPIVACAINE ADJUSTED DOSE
     Route: 037

REACTIONS (1)
  - Procedural hypotension [Unknown]
